FAERS Safety Report 6342190-X (Version None)
Quarter: 2009Q3

REPORT INFORMATION
  Report Type: 
  Country: None (occurrence: None)
  Receive Date: 20090903
  Receipt Date: 20090903
  Transmission Date: 20100115
  Serious: No
  Sender: FDA-Public Use
  Company Number: None

PATIENT
  Age: 56 Year
  Sex: Male
  Weight: 108.8633 kg

DRUGS (1)
  1. ZICAM ZICAM NASAL GEL [Suspect]
     Indication: NASOPHARYNGITIS
     Dosage: ONE SQUIRT PER NOSTRIL AS NEEDED NASAL
     Route: 045
     Dates: start: 20090107, end: 20090302

REACTIONS (6)
  - ANOSMIA [None]
  - HEADACHE [None]
  - INFECTION [None]
  - PRODUCT QUALITY ISSUE [None]
  - SINUSITIS [None]
  - TOOTHACHE [None]
